FAERS Safety Report 11003641 (Version 1)
Quarter: 2015Q2

REPORT INFORMATION
  Report Type: Spontaneous
  Country: US (occurrence: None)
  Receive Date: 20150408
  Receipt Date: 20150408
  Transmission Date: 20150821
  Serious: Yes (Hospitalization)
  Sender: FDA-Public Use
  Company Number: None

PATIENT
  Age: 41 Year
  Sex: Male
  Weight: 51.4 kg

DRUGS (2)
  1. FENTANYL. [Suspect]
     Active Substance: FENTANYL
     Indication: PAIN
     Route: 061
     Dates: start: 20150105, end: 20150223
  2. LORAZEPAM. [Suspect]
     Active Substance: LORAZEPAM
     Indication: POST-TRAUMATIC STRESS DISORDER
     Route: 048
     Dates: start: 20140430, end: 20150223

REACTIONS (6)
  - Sedation [None]
  - Lethargy [None]
  - Abdominal pain [None]
  - Accidental overdose [None]
  - Back pain [None]
  - Intentional product misuse [None]

NARRATIVE: CASE EVENT DATE: 20150223
